FAERS Safety Report 23437970 (Version 4)
Quarter: 2024Q1

REPORT INFORMATION
  Report Type: Spontaneous
  Country: US (occurrence: US)
  Receive Date: 20240124
  Receipt Date: 20240319
  Transmission Date: 20240410
  Serious: No
  Sender: FDA-Public Use
  Company Number: US-PFIZER INC-202400019639

PATIENT
  Age: 13 Year
  Sex: Male

DRUGS (2)
  1. NGENLA [Suspect]
     Active Substance: SOMATROGON-GHLA
     Indication: Growth hormone deficiency
     Dosage: 27 MG, WEEKLY
     Dates: start: 202401
  2. NGENLA [Suspect]
     Active Substance: SOMATROGON-GHLA
     Dosage: 27 MG, WEEKLY
     Dates: start: 20240118

REACTIONS (1)
  - Injection site pain [Unknown]

NARRATIVE: CASE EVENT DATE: 20240101
